FAERS Safety Report 8453622-5 (Version None)
Quarter: 2012Q2

REPORT INFORMATION
  Report Type: 
  Country: None (occurrence: None)
  Receive Date: 20120620
  Receipt Date: 20120614
  Transmission Date: 20120825
  Serious: Yes (Disabling)
  Sender: FDA-Public Use
  Company Number: US-MERCK-1103USA03601

PATIENT
  Age: 54 Year
  Sex: Male
  Weight: 100 kg

DRUGS (1)
  1. PROPECIA [Suspect]
     Indication: ALOPECIA
     Route: 048

REACTIONS (38)
  - SEXUAL DYSFUNCTION [None]
  - ECCHYMOSIS [None]
  - AMNESIA [None]
  - WEIGHT INCREASED [None]
  - RENAL ANEURYSM [None]
  - JOINT INJURY [None]
  - HEADACHE [None]
  - URINARY TRACT INFECTION [None]
  - CHEST PAIN [None]
  - BACK INJURY [None]
  - DIPLOPIA [None]
  - BLOOD TRIGLYCERIDES INCREASED [None]
  - DIZZINESS [None]
  - LACERATION [None]
  - POST-TRAUMATIC HEADACHE [None]
  - OEDEMA [None]
  - PROSTATISM [None]
  - CALCULUS URETERIC [None]
  - MELANOCYTIC NAEVUS [None]
  - INSOMNIA [None]
  - DEPRESSED LEVEL OF CONSCIOUSNESS [None]
  - NECK INJURY [None]
  - ROAD TRAFFIC ACCIDENT [None]
  - DISTURBANCE IN ATTENTION [None]
  - SUPRAVENTRICULAR EXTRASYSTOLES [None]
  - NEPHROLITHIASIS [None]
  - HYPERTENSION [None]
  - ANAEMIA [None]
  - ERECTILE DYSFUNCTION [None]
  - ATRIAL FIBRILLATION [None]
  - ROSACEA [None]
  - ALOPECIA [None]
  - ANXIETY [None]
  - HYDRONEPHROSIS [None]
  - RHINITIS ALLERGIC [None]
  - DIVERTICULUM [None]
  - DEPRESSION [None]
  - COSTOCHONDRITIS [None]
